FAERS Safety Report 8553340-9 (Version None)
Quarter: 2012Q3

REPORT INFORMATION
  Report Type: 
  Country: None (occurrence: None)
  Receive Date: 20120731
  Receipt Date: 20120716
  Transmission Date: 20120928
  Serious: Yes (Death, Hospitalization)
  Sender: FDA-Public Use
  Company Number: ES-ROCHE-1087364

PATIENT
  Sex: Female
  Weight: 74 kg

DRUGS (4)
  1. VINORELBINE [Suspect]
     Indication: BREAST CANCER METASTATIC
     Route: 042
     Dates: start: 20120329, end: 20120329
  2. HERCEPTIN [Suspect]
     Indication: BREAST CANCER METASTATIC
     Route: 042
     Dates: start: 20120216, end: 20120301
  3. HERCEPTIN [Suspect]
     Dates: start: 20120329, end: 20120329
  4. TAXOL [Suspect]
     Indication: BREAST CANCER METASTATIC
     Route: 042
     Dates: start: 20120125, end: 20120301

REACTIONS (3)
  - PULMONARY TOXICITY [None]
  - ORGANISING PNEUMONIA [None]
  - RESPIRATORY FAILURE [None]
